FAERS Safety Report 5866005-9 (Version None)
Quarter: 2008Q3

REPORT INFORMATION
  Report Type: 
  Country: None (occurrence: None)
  Receive Date: 20080829
  Receipt Date: 20080827
  Transmission Date: 20090109
  Serious: Yes (Death, Other)
  Sender: FDA-Public Use
  Company Number: ES-ABBOTT-08P-144-0472906-00

PATIENT

DRUGS (3)
  1. RITONAVIR [Suspect]
     Indication: HIV INFECTION
     Dosage: 1000/400 MG
  2. APTIVUS [Suspect]
     Indication: HIV INFECTION
     Dosage: 1000/400 MG
  3. ANTIVIRALS FOR SYSTEMIC USE [Concomitant]
     Indication: HIV INFECTION
     Dosage: NOT REPORTED

REACTIONS (2)
  - DEATH [None]
  - HEPATOTOXICITY [None]
